FAERS Safety Report 20134169 (Version 1)
Quarter: 2021Q4

REPORT INFORMATION
  Report Type: Spontaneous
  Country: US (occurrence: US)
  Receive Date: 20211201
  Receipt Date: 20211201
  Transmission Date: 20220304
  Serious: Yes (Death, Hospitalization, Other)
  Sender: FDA-Public Use
  Company Number: US-GLAND PHARMA LIMITED-2021US008214

PATIENT
  Age: 65 Year
  Sex: Male

DRUGS (4)
  1. CISPLATIN [Suspect]
     Active Substance: CISPLATIN
     Indication: Adult T-cell lymphoma/leukaemia
     Dosage: UNK, CYCLIC
     Route: 065
  2. ETOPOSIDE [Suspect]
     Active Substance: ETOPOSIDE
     Indication: Adult T-cell lymphoma/leukaemia
     Dosage: UNK UNK, CYCLIC
     Route: 065
  3. METHYLPREDNISOLONE [Suspect]
     Active Substance: METHYLPREDNISOLONE
     Indication: Adult T-cell lymphoma/leukaemia
     Dosage: UNK UNK, CYCLIC
     Route: 065
  4. CYTARABINE [Suspect]
     Active Substance: CYTARABINE
     Indication: Adult T-cell lymphoma/leukaemia
     Dosage: UNK UNK, CYCLIC
     Route: 065

REACTIONS (5)
  - Cardiac arrest [Fatal]
  - Tumour lysis syndrome [Not Recovered/Not Resolved]
  - Gastrointestinal haemorrhage [Not Recovered/Not Resolved]
  - Cardiac failure [Not Recovered/Not Resolved]
  - Acute kidney injury [Not Recovered/Not Resolved]
